FAERS Safety Report 8169095-6 (Version None)
Quarter: 2012Q1

REPORT INFORMATION
  Report Type: 
  Country: None (occurrence: None)
  Receive Date: 20120227
  Receipt Date: 20120223
  Transmission Date: 20120608
  Serious: Yes (Other)
  Sender: FDA-Public Use
  Company Number: US-ABBOTT-12P-163-0908762-00

PATIENT
  Sex: Male

DRUGS (8)
  1. ANDROGEL [Suspect]
     Indication: BLOOD TESTOSTERONE DECREASED
     Route: 061
     Dates: start: 20080101, end: 20110901
  2. ATACAND [Concomitant]
     Indication: HYPERTENSION
  3. PREVACID [Concomitant]
     Indication: GASTROOESOPHAGEAL REFLUX DISEASE
  4. ASPIRIN [Concomitant]
     Indication: CARDIAC DISORDER
  5. ANDROGEL [Suspect]
     Route: 061
     Dates: start: 20120101
  6. CADUET [Concomitant]
     Indication: HYPERTENSION
  7. ATENOLOL [Concomitant]
     Indication: HYPERTENSION
  8. CADUET [Concomitant]
     Indication: BLOOD CHOLESTEROL

REACTIONS (3)
  - ROTATOR CUFF SYNDROME [None]
  - EXOSTOSIS [None]
  - HEADACHE [None]
